FAERS Safety Report 10004507 (Version 1)
Quarter: 2014Q1

REPORT INFORMATION
  Report Type: Spontaneous
  Country: US (occurrence: US)
  Receive Date: 20140312
  Receipt Date: 20140312
  Transmission Date: 20141002
  Serious: Yes (Other)
  Sender: FDA-Public Use
  Company Number: PHHY2014US027089

PATIENT
  Age: 17 Year
  Sex: Male

DRUGS (6)
  1. PREDNISONE [Suspect]
     Indication: TUBULOINTERSTITIAL NEPHRITIS
     Dosage: 60 MG
  2. PREDNISONE [Suspect]
     Dosage: 20 MG
  3. PREDNISONE [Suspect]
     Dosage: 60 MG
  4. AZATHIOPRINE [Suspect]
  5. METHYLPHENIDATE [Concomitant]
  6. INFLIXIMAB [Concomitant]
     Dosage: 5 MG/KG

REACTIONS (6)
  - Mood swings [Unknown]
  - Performance status decreased [Unknown]
  - Drug intolerance [Unknown]
  - Erythema nodosum [Unknown]
  - Cushingoid [Unknown]
  - Renal impairment [Unknown]
